FAERS Safety Report 4453728-1 (Version None)
Quarter: 2004Q3

REPORT INFORMATION
  Report Type: 
  Country: None (occurrence: None)
  Receive Date: 20040920
  Receipt Date: 20040914
  Transmission Date: 20050211
  Serious: Yes (Hospitalization)
  Sender: FDA-Public Use
  Company Number: PHBS2004BE12142

PATIENT
  Age: 83 Year
  Sex: Male

DRUGS (2)
  1. DIOVAN [Suspect]
     Indication: HYPERTENSION
     Dosage: 160 MG/DAY
     Route: 048
     Dates: start: 20030101, end: 20030601
  2. LASIX [Concomitant]
     Indication: OEDEMA PERIPHERAL
     Dates: start: 20030101

REACTIONS (5)
  - BLOOD CREATININE INCREASED [None]
  - CARDIAC FAILURE [None]
  - CONDITION AGGRAVATED [None]
  - DIALYSIS [None]
  - RENAL FAILURE [None]
